FAERS Safety Report 24089311 (Version 1)
Quarter: 2024Q3

REPORT INFORMATION
  Report Type: Spontaneous
  Country: US (occurrence: US)
  Receive Date: 20240715
  Receipt Date: 20240715
  Transmission Date: 20241017
  Serious: Yes (Other)
  Sender: ABBVIE
  Company Number: US-ABBVIE-5834375

PATIENT

DRUGS (7)
  1. HUMIRA [Suspect]
     Active Substance: ADALIMUMAB
     Indication: Rheumatoid arthritis
     Route: 058
     Dates: start: 20230928
  2. AQUAPHOR [Suspect]
     Active Substance: PETROLATUM
     Indication: Pruritus
     Route: 061
     Dates: start: 2023
  3. CAPSAICIN [Concomitant]
     Active Substance: CAPSAICIN
     Indication: Pruritus
  4. FEXOFENADINE HYDROCHLORIDE [Concomitant]
     Active Substance: FEXOFENADINE HYDROCHLORIDE
     Indication: Product used for unknown indication
  5. SPIKEVAX (ELASOMERAN) [Suspect]
     Active Substance: ELASOMERAN
     Indication: COVID-19
     Dosage: DOSE 6
     Route: 030
     Dates: start: 20231012
  6. MINERALS\VITAMINS [Concomitant]
     Active Substance: MINERALS\VITAMINS
     Indication: Product used for unknown indication
  7. Metamucil fiber gummies (Fibre, dietary) [Concomitant]
     Indication: Product used for unknown indication

REACTIONS (10)
  - Neutropenia [Not Recovered/Not Resolved]
  - Rash pruritic [Not Recovered/Not Resolved]
  - Mechanical urticaria [Not Recovered/Not Resolved]
  - Miliaria [Not Recovered/Not Resolved]
  - Osteoarthritis [Unknown]
  - Drug intolerance [Unknown]
  - Immunodeficiency [Unknown]
  - Vomiting [Unknown]
  - Vertigo [Unknown]
  - Dizziness [Unknown]

NARRATIVE: CASE EVENT DATE: 20230101
